FAERS Safety Report 16993791 (Version 1)
Quarter: 2019Q4

REPORT INFORMATION
  Report Type: Report from Study
  Country: CA (occurrence: CA)
  Receive Date: 20191105
  Receipt Date: 20191105
  Transmission Date: 20200122
  Serious: Yes (Other)
  Sender: FDA-Public Use
  Company Number: CA-GLAXOSMITHKLINE-CA2019AMR151115

PATIENT
  Sex: Female

DRUGS (1)
  1. MEPOLIZUMAB [Suspect]
     Active Substance: MEPOLIZUMAB
     Indication: EOSINOPHILIC GRANULOMATOSIS WITH POLYANGIITIS
     Dosage: 100 MG, Z (MONTHLY)
     Route: 042
     Dates: start: 20180719

REACTIONS (13)
  - Heart rate increased [Unknown]
  - Vasodilatation [Unknown]
  - Depressed mood [Unknown]
  - Abnormal behaviour [Unknown]
  - Migraine [Unknown]
  - Blood pressure increased [Unknown]
  - Restlessness [Unknown]
  - Tearfulness [Unknown]
  - Pruritus [Unknown]
  - Drug abuse [Unknown]
  - Acne [Unknown]
  - Stress [Unknown]
  - Feeling jittery [Unknown]
